FAERS Safety Report 6572485-6 (Version None)
Quarter: 2010Q1

REPORT INFORMATION
  Report Type: 
  Country: None (occurrence: None)
  Receive Date: 20100205
  Receipt Date: 20100127
  Transmission Date: 20100710
  Serious: Yes (Hospitalization)
  Sender: FDA-Public Use
  Company Number: FR-MERCK-1001FRA00062

PATIENT
  Age: 21 Year
  Sex: Male

DRUGS (5)
  1. CANCIDAS [Suspect]
     Indication: CANDIDIASIS
     Route: 042
     Dates: start: 20091201
  2. FLUCONAZOLE [Suspect]
     Indication: STAPHYLOCOCCAL SEPSIS
     Route: 065
     Dates: start: 20091124, end: 20091130
  3. FLUCONAZOLE [Suspect]
     Indication: SYSTEMIC CANDIDA
     Route: 065
     Dates: start: 20091124, end: 20091130
  4. RISPERIDONE [Concomitant]
     Indication: AUTISM
     Route: 065
  5. SERTRALINE HYDROCHLORIDE [Concomitant]
     Indication: AUTISM
     Route: 065

REACTIONS (1)
  - CHOLESTASIS [None]
